FAERS Safety Report 6054393-2 (Version None)
Quarter: 2009Q1

REPORT INFORMATION
  Report Type: 
  Country: None (occurrence: None)
  Receive Date: 20090123
  Receipt Date: 20090123
  Transmission Date: 20090719
  Serious: Yes (Other)
  Sender: FDA-Public Use
  Company Number: None

PATIENT
  Age: 52 Year
  Sex: Male
  Weight: 156.0374 kg

DRUGS (2)
  1. MICARDIS [Suspect]
     Indication: BLOOD PRESSURE INCREASED
     Dosage: 40 MG 1 X PO
     Route: 048
     Dates: start: 20090122, end: 20090122
  2. METFORMIN [Concomitant]

REACTIONS (6)
  - DEPRESSED MOOD [None]
  - FATIGUE [None]
  - FEELING ABNORMAL [None]
  - NAUSEA [None]
  - VISION BLURRED [None]
  - VISUAL IMPAIRMENT [None]
